FAERS Safety Report 24022704 (Version 1)
Quarter: 2024Q2

REPORT INFORMATION
  Report Type: Report from Study
  Country: US (occurrence: US)
  Receive Date: 20240627
  Receipt Date: 20240627
  Transmission Date: 20240716
  Serious: No
  Sender: FDA-Public Use
  Company Number: US-ROCHE-3499445

PATIENT
  Age: 57 Year
  Sex: Male

DRUGS (23)
  1. VABYSMO [Suspect]
     Active Substance: FARICIMAB\FARICIMAB-SVOA
     Indication: Cataract nuclear
     Dosage: DOSE 6 MG/0.05 ML, DATE OF SERIVE 17/JAN/2024
     Route: 050
     Dates: start: 20220527
  2. VABYSMO [Suspect]
     Active Substance: FARICIMAB\FARICIMAB-SVOA
     Indication: Choroidal neovascularisation
  3. VABYSMO [Suspect]
     Active Substance: FARICIMAB\FARICIMAB-SVOA
     Indication: Neovascular age-related macular degeneration
  4. VABYSMO [Suspect]
     Active Substance: FARICIMAB\FARICIMAB-SVOA
     Indication: Dry age-related macular degeneration
  5. VABYSMO [Suspect]
     Active Substance: FARICIMAB\FARICIMAB-SVOA
     Indication: Pathologic myopia
  6. VABYSMO [Suspect]
     Active Substance: FARICIMAB\FARICIMAB-SVOA
     Indication: Haemangioma
  7. AVASTIN [Suspect]
     Active Substance: BEVACIZUMAB
     Indication: Neovascular age-related macular degeneration
     Route: 050
     Dates: start: 20150706
  8. AVASTIN [Suspect]
     Active Substance: BEVACIZUMAB
     Indication: Cataract nuclear
  9. AVASTIN [Suspect]
     Active Substance: BEVACIZUMAB
     Indication: Neovascular age-related macular degeneration
  10. AVASTIN [Suspect]
     Active Substance: BEVACIZUMAB
     Indication: Choroidal neovascularisation
  11. AVASTIN [Suspect]
     Active Substance: BEVACIZUMAB
     Indication: Dry age-related macular degeneration
  12. AVASTIN [Suspect]
     Active Substance: BEVACIZUMAB
     Indication: Pathologic myopia
  13. AVASTIN [Suspect]
     Active Substance: BEVACIZUMAB
     Indication: Haemangioma
  14. LUCENTIS [Suspect]
     Active Substance: RANIBIZUMAB
     Indication: Neovascular age-related macular degeneration
     Route: 050
     Dates: start: 20131104
  15. LUCENTIS [Suspect]
     Active Substance: RANIBIZUMAB
     Indication: Cataract nuclear
  16. LUCENTIS [Suspect]
     Active Substance: RANIBIZUMAB
     Indication: Neovascular age-related macular degeneration
  17. LUCENTIS [Suspect]
     Active Substance: RANIBIZUMAB
     Indication: Choroidal neovascularisation
  18. LUCENTIS [Suspect]
     Active Substance: RANIBIZUMAB
     Indication: Dry age-related macular degeneration
  19. LUCENTIS [Suspect]
     Active Substance: RANIBIZUMAB
     Indication: Pathologic myopia
  20. LUCENTIS [Suspect]
     Active Substance: RANIBIZUMAB
     Indication: Haemangioma
  21. LIPITOR [Concomitant]
     Active Substance: ATORVASTATIN CALCIUM
  22. EYLEA [Concomitant]
     Active Substance: AFLIBERCEPT
  23. MINERALS\VITAMINS [Concomitant]
     Active Substance: MINERALS\VITAMINS
     Route: 048

REACTIONS (2)
  - Off label use [Unknown]
  - Rash [Unknown]

NARRATIVE: CASE EVENT DATE: 20230101
